FAERS Safety Report 7285741-3 (Version None)
Quarter: 2011Q1

REPORT INFORMATION
  Report Type: 
  Country: None (occurrence: None)
  Receive Date: 20110210
  Receipt Date: 20110131
  Transmission Date: 20110831
  Serious: Yes (Death)
  Sender: FDA-Public Use
  Company Number: ES-EISAI INC-E3810-04432-SPO-ES

PATIENT
  Age: 22 Year
  Sex: Male

DRUGS (2)
  1. PARIET (RABEPRAZOLE) [Suspect]
     Indication: ANTACID THERAPY
     Dosage: UNKNOWN
     Route: 048
     Dates: start: 20110120
  2. PRIMPERAN TAB [Concomitant]
     Indication: PROPHYLAXIS
     Dates: start: 20110120

REACTIONS (1)
  - GASTROINTESTINAL HAEMORRHAGE [None]
